FAERS Safety Report 10497840 (Version 1)
Quarter: 2014Q4

REPORT INFORMATION
  Report Type: Spontaneous
  Country: BR (occurrence: BR)
  Receive Date: 20141006
  Receipt Date: 20141006
  Transmission Date: 20150528
  Serious: Yes (Death, Other)
  Sender: FDA-Public Use
  Company Number: BR-SA-2014SA136476

PATIENT
  Age: 80 Year
  Sex: Female
  Weight: 40 kg

DRUGS (1)
  1. CLEXANE [Suspect]
     Active Substance: ENOXAPARIN SODIUM
     Dosage: DOSE: 6 BOXES OF PRODUCT TOTALING 720MG FOR 5 DAYS
     Route: 065
     Dates: start: 20131225, end: 20131230

REACTIONS (5)
  - Haemorrhage [Fatal]
  - Renal impairment [Unknown]
  - Skin discolouration [Unknown]
  - Overdose [Fatal]
  - Swelling [Unknown]
